FAERS Safety Report 19814465 (Version 1)
Quarter: 2021Q3

REPORT INFORMATION
  Report Type: Spontaneous
  Country: US (occurrence: US)
  Receive Date: 20210910
  Receipt Date: 20210910
  Transmission Date: 20211014
  Serious: Yes (Hospitalization)
  Sender: FDA-Public Use
  Company Number: None

PATIENT
  Age: 45 Year
  Sex: Male
  Weight: 96.3 kg

DRUGS (3)
  1. LEVOXYTHROXINE [Concomitant]
  2. WEGOVY [Suspect]
     Active Substance: SEMAGLUTIDE
     Indication: WEIGHT DECREASED
     Dosage: ?          QUANTITY:4 INJECTION(S);OTHER FREQUENCY:WEEKLY;?
     Route: 058
     Dates: start: 20210908, end: 20210910
  3. METAFORMIN [Concomitant]

REACTIONS (5)
  - Asthenia [None]
  - Nausea [None]
  - Vomiting [None]
  - Dizziness [None]
  - Headache [None]

NARRATIVE: CASE EVENT DATE: 20210908
